FAERS Safety Report 24120074 (Version 1)
Quarter: 2024Q3

REPORT INFORMATION
  Report Type: Spontaneous
  Country: US (occurrence: US)
  Receive Date: 20240722
  Receipt Date: 20240722
  Transmission Date: 20241016
  Serious: Yes (Other)
  Sender: PFIZER
  Company Number: US-PFIZER INC-PV202400094039

PATIENT
  Age: 20 Year
  Sex: Male

DRUGS (6)
  1. GEMCITABINE HYDROCHLORIDE [Suspect]
     Active Substance: GEMCITABINE HYDROCHLORIDE
     Dosage: 4 CYCLES
  2. OXALIPLATIN [Suspect]
     Active Substance: OXALIPLATIN
     Dosage: 4 CYCLES
  3. PACLITAXEL [Suspect]
     Active Substance: PACLITAXEL
     Dosage: 4 CYCLES
  4. PACLITAXEL [Suspect]
     Active Substance: PACLITAXEL
     Dosage: ONE CYCLE
  5. IFOSFAMIDE [Suspect]
     Active Substance: IFOSFAMIDE
     Dosage: ONE CYCLE
  6. CISPLATIN [Suspect]
     Active Substance: CISPLATIN
     Dosage: ONE CYCLE

REACTIONS (2)
  - Alpha 1 foetoprotein decreased [Unknown]
  - Alpha 1 foetoprotein increased [Unknown]
